FAERS Safety Report 7608597-5 (Version None)
Quarter: 2011Q3

REPORT INFORMATION
  Report Type: 
  Country: None (occurrence: None)
  Receive Date: 20110714
  Receipt Date: 20110706
  Transmission Date: 20111222
  Serious: Yes (Other)
  Sender: FDA-Public Use
  Company Number: PHHY2010CA47368

PATIENT
  Sex: Female

DRUGS (7)
  1. ZOLEDRONOC ACID [Suspect]
     Dosage: 5 MG, UNK
     Dates: start: 20100831
  2. TYLENOL-500 [Concomitant]
     Dosage: 325 MG, PRN
     Route: 048
  3. RABEPRAZOLE SODIUM [Concomitant]
     Dosage: 20 MG, QD
     Route: 048
  4. ATENOLOL [Concomitant]
     Dosage: 25 MG, QD
     Route: 048
  5. VITAMIN D [Concomitant]
     Dosage: 2000 U, QD
     Route: 048
  6. CALCIUM CARBONATE [Concomitant]
     Dosage: 1000 MG, QD
     Route: 048
  7. ZOLEDRONOC ACID [Suspect]
     Indication: OSTEOPOROSIS
     Dosage: 5 MG, UNK
     Dates: start: 20090514

REACTIONS (8)
  - HAEMATOCRIT DECREASED [None]
  - RED CELL DISTRIBUTION WIDTH INCREASED [None]
  - ARTHRITIS [None]
  - FEMUR FRACTURE [None]
  - HAEMOGLOBIN DECREASED [None]
  - MEAN CELL HAEMOGLOBIN INCREASED [None]
  - NASOPHARYNGITIS [None]
  - RED BLOOD CELL COUNT DECREASED [None]
